FAERS Safety Report 15070208 (Version 2)
Quarter: 2018Q3

REPORT INFORMATION
  Report Type: Spontaneous
  Country: GB (occurrence: FR)
  Receive Date: 20180626
  Receipt Date: 20180714
  Transmission Date: 20181010
  Serious: Yes (Life-Threatening, Hospitalization)
  Sender: FDA-Public Use
  Company Number: FR-FRESENIUS KABI-FK201807202

PATIENT
  Age: 46 Year
  Sex: Male
  Weight: 71 kg

DRUGS (4)
  1. PIPERACILLIN SODIUM/TAZOBACTAM SODIUM [Suspect]
     Active Substance: PIPERACILLIN SODIUM\TAZOBACTAM SODIUM
     Indication: INFECTION
     Dosage: UNKNOWN
     Route: 042
     Dates: start: 20161015, end: 20161021
  2. CIPROFLOXACINE [Concomitant]
     Active Substance: CIPROFLOXACIN
     Indication: INFECTION
     Dosage: UNKNOWN
     Route: 042
     Dates: start: 20161015, end: 20161021
  3. VANCOMYCIN (MANUFACTURER UNKNOWN) [Suspect]
     Active Substance: VANCOMYCIN
     Indication: INFECTION
     Dosage: 30 MG/KG DAILY
     Route: 042
     Dates: start: 20161231, end: 20170109
  4. DAPTOMYCIN. [Suspect]
     Active Substance: DAPTOMYCIN
     Indication: INFECTION
     Dosage: UNKNOWN
     Route: 042
     Dates: start: 20161020

REACTIONS (7)
  - Eosinophilia [Not Recovered/Not Resolved]
  - Shock [Recovered/Resolved]
  - Eosinophilia [Not Recovered/Not Resolved]
  - Rash [Recovering/Resolving]
  - Acute respiratory distress syndrome [Recovered/Resolved]
  - Rash [Recovered/Resolved]
  - Pyrexia [Recovered/Resolved]

NARRATIVE: CASE EVENT DATE: 20161025
